FAERS Safety Report 14434968 (Version 6)
Quarter: 2019Q2

REPORT INFORMATION
  Report Type: Report from Study
  Country: CN (occurrence: CN)
  Receive Date: 20180125
  Receipt Date: 20190412
  Transmission Date: 20190711
  Serious: Yes (Hospitalization, Other)
  Sender: FDA-Public Use
  Company Number: PHHY2016CN117570

PATIENT
  Age: 48 Year
  Sex: Male

DRUGS (101)
  1. MYFORTIC [Suspect]
     Active Substance: MYCOPHENOLATE SODIUM
     Dosage: 180 MG, QD
     Route: 065
     Dates: start: 20161214, end: 20161214
  2. TACROLIMUS. [Suspect]
     Active Substance: TACROLIMUS
     Dosage: 1.5 MG, QD
     Route: 065
     Dates: start: 20160718
  3. PREDNISONE. [Suspect]
     Active Substance: PREDNISONE
     Dosage: 10 MG, QD
     Route: 065
     Dates: start: 20160629, end: 20160717
  4. CALCINATE//CALCIUM GLUCONATE [Concomitant]
     Dosage: 20 ML, QD
     Route: 042
     Dates: start: 20160615, end: 20160615
  5. PHOSPHOCREATINE SODIUM [Concomitant]
     Active Substance: PHOSPHOCREATINE SODIUM
     Indication: CARDIOVASCULAR EVENT PROPHYLAXIS
     Dosage: 2000 MG, QD
     Route: 042
     Dates: start: 20160614, end: 20160624
  6. DEZOCINE [Concomitant]
     Active Substance: DEZOCINE
     Indication: INCISION SITE PAIN
     Dosage: 30 MG, QD
     Route: 042
     Dates: start: 20160614, end: 20160614
  7. FUROSEMIDE. [Concomitant]
     Active Substance: FUROSEMIDE
     Dosage: 40 MG, QD
     Route: 042
     Dates: start: 20160625, end: 20160625
  8. LINEZOLID. [Concomitant]
     Active Substance: LINEZOLID
     Indication: INFECTION PROPHYLAXIS
     Dosage: 600 MG, BID
     Route: 042
     Dates: start: 20160614, end: 20160630
  9. OMEPRAZOLE. [Concomitant]
     Active Substance: OMEPRAZOLE
     Indication: PROPHYLAXIS
     Dosage: 10 MG, BID
     Route: 048
     Dates: start: 20160625, end: 20160703
  10. SODIUM NITROPRUSSIDE. [Concomitant]
     Active Substance: SODIUM NITROPRUSSIDE
     Dosage: 50 MG, QD
     Route: 042
     Dates: start: 20160617, end: 20160618
  11. TORASEMIDE [Concomitant]
     Active Substance: TORSEMIDE
     Dosage: 20 MG, QD
     Route: 042
     Dates: start: 20160716, end: 20160716
  12. PENCICLOVIR. [Concomitant]
     Active Substance: PENCICLOVIR
     Indication: INTERSTITIAL LUNG DISEASE
     Dosage: 500 MG, QD
     Route: 042
     Dates: start: 20161012, end: 20161012
  13. MYFORTIC [Suspect]
     Active Substance: MYCOPHENOLATE SODIUM
     Dosage: 1080 MG, QD
     Route: 065
     Dates: start: 20160624, end: 20160905
  14. MYFORTIC [Suspect]
     Active Substance: MYCOPHENOLATE SODIUM
     Dosage: 1440 MG, QD
     Route: 065
     Dates: start: 20160907, end: 20161110
  15. MYFORTIC [Suspect]
     Active Substance: MYCOPHENOLATE SODIUM
     Dosage: 360 MG, QD
     Route: 065
     Dates: start: 20161202, end: 20161227
  16. TACROLIMUS. [Suspect]
     Active Substance: TACROLIMUS
     Dosage: 4 MG, QD
     Route: 065
     Dates: start: 20160715, end: 20160717
  17. PREDNISONE. [Suspect]
     Active Substance: PREDNISONE
     Dosage: 40 MG, QD
     Route: 065
     Dates: start: 20160618, end: 20160618
  18. PREDNISONE. [Suspect]
     Active Substance: PREDNISONE
     Dosage: 20 MG, QD
     Route: 065
     Dates: start: 20160620, end: 20160620
  19. PREDNISONE. [Suspect]
     Active Substance: PREDNISONE
     Dosage: 10 MG, QD
     Route: 065
     Dates: start: 20160621, end: 20160628
  20. VITAMAM 3 [Concomitant]
     Indication: SUPPLEMENTATION THERAPY
     Dosage: 1 DF (2 VIAL), QD
     Route: 042
     Dates: start: 20160614, end: 20160618
  21. CALCINATE//CALCIUM GLUCONATE [Concomitant]
     Dosage: 20 ML, QD
     Route: 042
     Dates: start: 20160617, end: 20160617
  22. ALOSTIN//ALPROSTADIL [Concomitant]
     Indication: PROPHYLAXIS
     Dosage: 20 UG, QD
     Route: 042
     Dates: start: 20160614, end: 20170717
  23. AMINO ACID [Concomitant]
     Active Substance: AMINO ACIDS
     Indication: SUPPLEMENTATION THERAPY
     Dosage: 250 ML, QD
     Route: 042
     Dates: start: 20160616, end: 20160623
  24. CEFOPERAZONE SODIUM W/TAZOBACTAM SODIUM [Concomitant]
     Indication: SKIN TEST
     Dosage: 2500 MG, QD
     Route: 023
     Dates: start: 20160620, end: 20160620
  25. FUROSEMIDE. [Concomitant]
     Active Substance: FUROSEMIDE
     Indication: POLYURIA
     Dosage: 100 MG, QD
     Route: 042
     Dates: start: 20160614, end: 20160614
  26. POTASSIUM CHLORIDE. [Concomitant]
     Active Substance: POTASSIUM CHLORIDE
     Indication: MINERAL SUPPLEMENTATION
     Dosage: 1000 MG, TID
     Route: 048
     Dates: start: 20160618, end: 20160619
  27. POTASSIUM CHLORIDE. [Concomitant]
     Active Substance: POTASSIUM CHLORIDE
     Indication: PROPHYLAXIS
     Dosage: 2000 MG, TID
     Route: 048
     Dates: start: 20160620, end: 20160620
  28. PRAZOSIN HYDROCHLORIDE. [Concomitant]
     Active Substance: PRAZOSIN HYDROCHLORIDE
     Dosage: 2 MG, TID
     Route: 048
     Dates: start: 20160619, end: 20160708
  29. GANCICLOVIR. [Concomitant]
     Active Substance: GANCICLOVIR
     Indication: INFECTION PROPHYLAXIS
     Dosage: 500 MG, TID
     Route: 048
     Dates: start: 20160716
  30. HEPARIN SODIUM. [Concomitant]
     Active Substance: HEPARIN SODIUM
     Indication: PRODUCT USED FOR UNKNOWN INDICATION
     Dosage: 1 DF (1.25 WU), QD
     Route: 042
     Dates: start: 20160614, end: 20160614
  31. LANSOPRAZOLE. [Concomitant]
     Active Substance: LANSOPRAZOLE
     Indication: PROPHYLAXIS
     Dosage: 60 MG, BID
     Route: 042
     Dates: start: 20160614, end: 20160623
  32. MICAFUNGIN SODIUM [Concomitant]
     Active Substance: MICAFUNGIN SODIUM
     Indication: PRODUCT USED FOR UNKNOWN INDICATION
     Dosage: 50 MG, QD
     Route: 042
     Dates: start: 20160701, end: 20160701
  33. SODIUM BICARBONATE. [Concomitant]
     Active Substance: SODIUM BICARBONATE
     Dosage: 1000 MG, QD
     Route: 048
     Dates: start: 20160708, end: 20160717
  34. SODIUM NITROPRUSSIDE. [Concomitant]
     Active Substance: SODIUM NITROPRUSSIDE
     Dosage: 50 MG, QD
     Route: 042
     Dates: start: 20160615, end: 20160615
  35. SODIUM NITROPRUSSIDE. [Concomitant]
     Active Substance: SODIUM NITROPRUSSIDE
     Dosage: 50 MG, QD
     Route: 042
     Dates: start: 20160616, end: 20160616
  36. AMPHOMUL [Concomitant]
     Indication: INFECTION PROPHYLAXIS
     Dosage: 30 MG, QD
     Route: 042
     Dates: start: 20160614, end: 20160705
  37. PIPERACILLIN SODIUM [Concomitant]
     Active Substance: PIPERACILLIN SODIUM
     Indication: SKIN TEST
     Dosage: 3000 MG, QD
     Route: 023
     Dates: start: 20161012, end: 20161016
  38. MYFORTIC [Suspect]
     Active Substance: MYCOPHENOLATE SODIUM
     Indication: RENAL TRANSPLANT
     Dosage: 1440 MG, QD
     Route: 065
     Dates: start: 20160614, end: 20160623
  39. MYFORTIC [Suspect]
     Active Substance: MYCOPHENOLATE SODIUM
     Dosage: 720 MG, QD
     Route: 065
     Dates: start: 20161111, end: 20161111
  40. MYFORTIC [Suspect]
     Active Substance: MYCOPHENOLATE SODIUM
     Dosage: 1080 MG, QD
     Route: 065
     Dates: start: 20170407
  41. PREDNISONE. [Suspect]
     Active Substance: PREDNISONE
     Indication: RENAL TRANSPLANT
     Dosage: 50 MG, QD
     Route: 065
     Dates: start: 20160617, end: 20160617
  42. CALCINATE//CALCIUM GLUCONATE [Concomitant]
     Dosage: 30 ML, QD
     Route: 042
     Dates: start: 20160618, end: 20160618
  43. SODIUM BICARBONATE. [Concomitant]
     Active Substance: SODIUM BICARBONATE
     Indication: SUPPLEMENTATION THERAPY
     Dosage: 250 ML, QD
     Route: 042
     Dates: start: 20160614, end: 20160614
  44. SODIUM BICARBONATE. [Concomitant]
     Active Substance: SODIUM BICARBONATE
     Dosage: 125 ML, QD
     Route: 042
     Dates: start: 20160621, end: 20160621
  45. AMBROXOL HYDROCHLORIDE [Concomitant]
     Active Substance: AMBROXOL HYDROCHLORIDE
     Indication: PRODUCTIVE COUGH
     Dosage: 210 MG, QD
     Route: 042
     Dates: start: 20160614, end: 20160625
  46. INDAPAMIDE. [Concomitant]
     Active Substance: INDAPAMIDE
     Indication: BLOOD PRESSURE DECREASED
     Dosage: 1.5 MG, QD
     Route: 048
     Dates: start: 20160620, end: 20160717
  47. POTASSIUM CHLORIDE. [Concomitant]
     Active Substance: POTASSIUM CHLORIDE
     Dosage: 30 ML, BID
     Route: 048
     Dates: start: 20160619, end: 20160619
  48. SODIUM BICARBONATE. [Concomitant]
     Active Substance: SODIUM BICARBONATE
     Indication: SUPPLEMENTATION THERAPY
     Dosage: 1500 MG, TID
     Route: 048
     Dates: start: 20160630
  49. SODIUM BICARBONATE. [Concomitant]
     Active Substance: SODIUM BICARBONATE
     Dosage: 1000 MG, QD
     Route: 042
     Dates: start: 20160716, end: 20160716
  50. TORASEMIDE [Concomitant]
     Active Substance: TORSEMIDE
     Indication: POLYURIA
     Dosage: 40 MG, QD
     Route: 042
     Dates: start: 20160617, end: 20160620
  51. MYFORTIC [Suspect]
     Active Substance: MYCOPHENOLATE SODIUM
     Dosage: 180 MG, QD
     Route: 065
     Dates: start: 20161201, end: 20161201
  52. MYFORTIC [Suspect]
     Active Substance: MYCOPHENOLATE SODIUM
     Dosage: 900 MG, QD
     Route: 065
     Dates: start: 20170406, end: 20170406
  53. BASILIXIMAB [Suspect]
     Active Substance: BASILIXIMAB
     Indication: RENAL TRANSPLANT
     Dosage: 20 MG, QD
     Route: 065
     Dates: start: 20160614, end: 20160614
  54. BASILIXIMAB [Suspect]
     Active Substance: BASILIXIMAB
     Dosage: 20 MG, QD
     Route: 065
     Dates: start: 20160617, end: 20161217
  55. TACROLIMUS. [Suspect]
     Active Substance: TACROLIMUS
     Dosage: 6 MG, QD
     Route: 065
     Dates: start: 20160621, end: 20160704
  56. PREDNISONE. [Suspect]
     Active Substance: PREDNISONE
     Dosage: 30 MG, QD
     Route: 065
     Dates: start: 20160619, end: 20160619
  57. VITAMAM 3 [Concomitant]
     Dosage: 1 DF (2 VIAL), QD
     Route: 042
     Dates: start: 20160619, end: 20160623
  58. CALCINATE//CALCIUM GLUCONATE [Concomitant]
     Indication: MINERAL SUPPLEMENTATION
     Dosage: 30 ML, QD
     Route: 042
     Dates: start: 20160614, end: 20160614
  59. ALANYL GLUTAMINE [Concomitant]
     Active Substance: ALANYL GLUTAMINE
     Indication: SUPPLEMENTATION THERAPY
     Dosage: 20000 MG, QD
     Route: 042
     Dates: start: 20160614, end: 20160623
  60. ALOSTIN//ALPROSTADIL [Concomitant]
     Indication: BLOOD CREATININE INCREASED
     Dosage: 20 UG, QD
     Route: 042
     Dates: start: 20170505, end: 20170509
  61. CEFOPERAZONE SODIUM W/TAZOBACTAM SODIUM [Concomitant]
     Indication: INFECTION PROPHYLAXIS
     Dosage: 5000 MG, BID
     Route: 042
     Dates: start: 20160620, end: 20160629
  62. FUROSEMIDE. [Concomitant]
     Active Substance: FUROSEMIDE
     Dosage: 60 MG, QD
     Route: 042
     Dates: start: 20160615, end: 20160616
  63. LEVAMLODIPINE BESILATE [Concomitant]
     Active Substance: LEVAMLODIPINE BESYLATE
     Indication: BLOOD PRESSURE DECREASED
     Dosage: 5 MG, QD
     Route: 048
     Dates: start: 20160615, end: 20160717
  64. PRAZOSIN HYDROCHLORIDE. [Concomitant]
     Active Substance: PRAZOSIN HYDROCHLORIDE
     Indication: BLOOD PRESSURE DECREASED
     Dosage: 1 MG, TID
     Route: 048
     Dates: start: 20160617, end: 20160618
  65. RIBOFLAVIN SODIUM PHOSPHATE [Concomitant]
     Active Substance: RIBOFLAVIN 5^-PHOSPHATE SODIUM
     Indication: PROPHYLAXIS
     Dosage: 20 MG, QD
     Route: 042
     Dates: start: 20160614, end: 20160625
  66. TORASEMIDE [Concomitant]
     Active Substance: TORSEMIDE
     Dosage: 20 MG, QD
     Route: 042
     Dates: start: 20160621, end: 20160622
  67. TORASEMIDE [Concomitant]
     Active Substance: TORSEMIDE
     Dosage: 40 MG, QD
     Route: 042
     Dates: start: 20160709, end: 20160712
  68. METHYLPREDNISOLONE. [Suspect]
     Active Substance: METHYLPREDNISOLONE
     Indication: RENAL TRANSPLANT
     Dosage: 500 MG, QD
     Route: 065
     Dates: start: 20160614, end: 20160615
  69. CALCINATE//CALCIUM GLUCONATE [Concomitant]
     Indication: BLOOD POTASSIUM DECREASED
     Dosage: 20 ML, QD
     Route: 042
     Dates: start: 20160614, end: 20160614
  70. CALCINATE//CALCIUM GLUCONATE [Concomitant]
     Dosage: 30 ML, QD
     Route: 042
     Dates: start: 20160615, end: 20160615
  71. SODIUM BICARBONATE. [Concomitant]
     Active Substance: SODIUM BICARBONATE
     Indication: BLOOD POTASSIUM DECREASED
     Dosage: 125 ML, QD
     Route: 042
     Dates: start: 20160615, end: 20160617
  72. SODIUM BICARBONATE. [Concomitant]
     Active Substance: SODIUM BICARBONATE
     Indication: PROPHYLAXIS
     Dosage: 125 ML, QD
     Route: 042
     Dates: start: 20160618, end: 20160618
  73. LANSOPRAZOLE. [Concomitant]
     Active Substance: LANSOPRAZOLE
     Dosage: 60 MG, QD
     Route: 042
     Dates: start: 20160703, end: 20160707
  74. MEROPENEM. [Concomitant]
     Active Substance: MEROPENEM
     Indication: INFECTION PROPHYLAXIS
     Dosage: 500 MG, TID
     Route: 042
     Dates: start: 20160614, end: 20160620
  75. PHENTOLAMINE MESYLATE. [Concomitant]
     Active Substance: PHENTOLAMINE MESYLATE
     Indication: POLYURIA
     Dosage: 10 MG, QD
     Route: 042
     Dates: start: 20160615, end: 20160616
  76. PIPERACILLIN SODIUM [Concomitant]
     Active Substance: PIPERACILLIN SODIUM
     Indication: INTERSTITIAL LUNG DISEASE
     Dosage: 3000 MG, UNK
     Route: 042
     Dates: start: 20161012, end: 20161012
  77. MYFORTIC [Suspect]
     Active Substance: MYCOPHENOLATE SODIUM
     Dosage: 540 MG AND 440 MG, UNK
     Route: 065
     Dates: start: 20161228, end: 20161228
  78. MYFORTIC [Suspect]
     Active Substance: MYCOPHENOLATE SODIUM
     Dosage: 720 MG AND 440 MG, UNK
     Route: 065
     Dates: start: 20161229, end: 20170405
  79. TACROLIMUS. [Suspect]
     Active Substance: TACROLIMUS
     Indication: RENAL TRANSPLANT
     Dosage: 7.5 MG, QD
     Route: 065
     Dates: start: 20160616, end: 20160620
  80. TACROLIMUS. [Suspect]
     Active Substance: TACROLIMUS
     Dosage: 5.5 MG, QD
     Route: 065
     Dates: start: 20160705, end: 20160711
  81. TACROLIMUS. [Suspect]
     Active Substance: TACROLIMUS
     Dosage: 4.5 MG, QD
     Route: 065
     Dates: start: 20160712, end: 20160714
  82. CALCINATE//CALCIUM GLUCONATE [Concomitant]
     Indication: PROPHYLAXIS
     Dosage: 30 ML, QD
     Route: 042
     Dates: start: 20160615, end: 20160615
  83. FEBUXOSTAT. [Concomitant]
     Active Substance: FEBUXOSTAT
     Indication: BLOOD URIC ACID DECREASED
     Dosage: 40 MG, QD
     Route: 048
     Dates: start: 20160706, end: 20160717
  84. FUROSEMIDE. [Concomitant]
     Active Substance: FUROSEMIDE
     Dosage: 40 MG, QD
     Route: 042
     Dates: start: 20160704, end: 20160707
  85. LINEZOLID. [Concomitant]
     Active Substance: LINEZOLID
     Dosage: 600 MG, BID
     Route: 048
     Dates: start: 20160629
  86. MAGNESIUM ISOGLYCYRRHIZINATE [Concomitant]
     Active Substance: MAGNESIUM ISOGLYCYRRHIZINATE
     Indication: PROPHYLAXIS
     Dosage: 150 MG, QD
     Route: 042
     Dates: start: 20160614, end: 20160625
  87. METOPROLOL SUCCINATE. [Concomitant]
     Active Substance: METOPROLOL SUCCINATE
     Indication: BLOOD PRESSURE DECREASED
     Dosage: 47.5 MG, BID
     Route: 048
     Dates: start: 20160615, end: 20160706
  88. MOXIFLOXACIN HYDROCHLORIDE. [Concomitant]
     Active Substance: MOXIFLOXACIN HYDROCHLORIDE
     Indication: PRODUCT USED FOR UNKNOWN INDICATION
     Dosage: 400 MG, QD
     Route: 042
     Dates: start: 20160614, end: 20160614
  89. POTASSIUM CHLORIDE. [Concomitant]
     Active Substance: POTASSIUM CHLORIDE
     Dosage: 30 ML, QD
     Route: 048
     Dates: start: 20160621, end: 20160621
  90. SCOPOLAMINE [Concomitant]
     Active Substance: SCOPOLAMINE
     Indication: PRODUCT USED FOR UNKNOWN INDICATION
     Dosage: 300 MG, QD
     Route: 030
     Dates: start: 20160613, end: 20160613
  91. TORASEMIDE [Concomitant]
     Active Substance: TORSEMIDE
     Dosage: 40 MG, QD
     Route: 042
     Dates: start: 20160708, end: 20160708
  92. MYFORTIC [Suspect]
     Active Substance: MYCOPHENOLATE SODIUM
     Dosage: 1260 MG, QD
     Route: 065
     Dates: start: 20160906, end: 20160906
  93. PHENOBARBITAL. [Concomitant]
     Active Substance: PHENOBARBITAL
     Indication: PRODUCT USED FOR UNKNOWN INDICATION
     Dosage: 100 MG, QD
     Route: 030
     Dates: start: 20160613, end: 20160613
  94. DEZOCINE [Concomitant]
     Active Substance: DEZOCINE
     Dosage: 30 MG, QD
     Route: 042
     Dates: start: 20160615, end: 20160617
  95. DOPAMINE [Concomitant]
     Active Substance: DOPAMINE\DOPAMINE HYDROCHLORIDE
     Indication: POLYURIA
     Dosage: 10 MG, QD
     Route: 042
     Dates: start: 20160615, end: 20160616
  96. LANSOPRAZOLE. [Concomitant]
     Active Substance: LANSOPRAZOLE
     Dosage: 60 MG, QD
     Route: 042
     Dates: start: 20160615, end: 20160623
  97. LANSOPRAZOLE. [Concomitant]
     Active Substance: LANSOPRAZOLE
     Dosage: 60 MG, QD
     Route: 042
     Dates: start: 20160624, end: 20160624
  98. POTASSIUM CHLORIDE. [Concomitant]
     Active Substance: POTASSIUM CHLORIDE
     Indication: MINERAL SUPPLEMENTATION
     Dosage: 30 ML,QD
     Route: 048
     Dates: start: 20160618, end: 20160618
  99. PRAZOSIN HYDROCHLORIDE. [Concomitant]
     Active Substance: PRAZOSIN HYDROCHLORIDE
     Dosage: 1 MG, TID
     Route: 048
     Dates: start: 20160709, end: 20160709
  100. SODIUM NITROPRUSSIDE. [Concomitant]
     Active Substance: SODIUM NITROPRUSSIDE
     Indication: BLOOD PRESSURE DECREASED
     Dosage: 50 MG, QD
     Route: 042
     Dates: start: 20160614, end: 20160614
  101. TORASEMIDE [Concomitant]
     Active Substance: TORSEMIDE
     Dosage: 20 MG, QD
     Route: 042
     Dates: start: 20160712, end: 20160712

REACTIONS (9)
  - Pericardial fibrosis [Unknown]
  - Diarrhoea [Recovered/Resolved]
  - Blood glucose increased [Unknown]
  - Upper respiratory tract infection [Recovered/Resolved]
  - Blood creatinine increased [Recovered/Resolved]
  - Kidney transplant rejection [Recovering/Resolving]
  - Diabetes mellitus [Not Recovered/Not Resolved]
  - Hyperuricaemia [Not Recovered/Not Resolved]
  - Anaemia [Recovering/Resolving]

NARRATIVE: CASE EVENT DATE: 20160616
